FAERS Safety Report 7784320-9 (Version None)
Quarter: 2011Q3

REPORT INFORMATION
  Report Type: 
  Country: None (occurrence: None)
  Receive Date: 20110928
  Receipt Date: 20110920
  Transmission Date: 20111222
  Serious: Yes (Hospitalization)
  Sender: FDA-Public Use
  Company Number: PHEH2011US04910

PATIENT
  Age: 23 Year
  Sex: Male
  Weight: 47.619 kg

DRUGS (1)
  1. TOBI [Suspect]
     Dosage: 300 MG, TWICE DAILY VIA NEBULIZER IN A CYCLE OF 28 DAYS ON AND 28 DAYS OFF
     Dates: start: 20110706

REACTIONS (1)
  - PNEUMONIA [None]
